FAERS Safety Report 15935037 (Version 1)
Quarter: 2019Q1

REPORT INFORMATION
  Report Type: Spontaneous
  Country: US (occurrence: US)
  Receive Date: 20190207
  Receipt Date: 20190207
  Transmission Date: 20190417
  Serious: Yes (Hospitalization)
  Sender: FDA-Public Use
  Company Number: US-VERTEX PHARMACEUTICALS-2019-001202

PATIENT

DRUGS (1)
  1. ORKAMBI [Suspect]
     Active Substance: IVACAFTOR\LUMACAFTOR
     Indication: CYSTIC FIBROSIS
     Dosage: UNK
     Route: 048
     Dates: start: 2015

REACTIONS (8)
  - Pain [Unknown]
  - Vomiting [Unknown]
  - Malaise [Unknown]
  - Rash [Unknown]
  - Headache [Unknown]
  - Pyrexia [Unknown]
  - Hospitalisation [Unknown]
  - Multiple allergies [Unknown]

NARRATIVE: CASE EVENT DATE: 2015
